FAERS Safety Report 4632902-5 (Version None)
Quarter: 2005Q2

REPORT INFORMATION
  Report Type: 
  Country: None (occurrence: None)
  Receive Date: 20050411
  Receipt Date: 20050411
  Transmission Date: 20051028
  Serious: No
  Sender: FDA-Public Use
  Company Number: None

PATIENT
  Sex: Male
  Weight: 97.3 kg

DRUGS (3)
  1. FLUOROURACIL [Suspect]
     Indication: ANAL CANCER
     Dates: start: 20040816
  2. CISPLATIN [Suspect]
  3. RT [Suspect]

REACTIONS (1)
  - ANAL ULCER [None]
